FAERS Safety Report 4844644-1 (Version None)
Quarter: 2005Q4

REPORT INFORMATION
  Report Type: 
  Country: None (occurrence: None)
  Receive Date: 20051129
  Receipt Date: 20051116
  Transmission Date: 20060501
  Serious: Yes (Hospitalization)
  Sender: FDA-Public Use
  Company Number: FR200511000881

PATIENT
  Age: 65 Year
  Sex: Male
  Weight: 78 kg

DRUGS (3)
  1. ALIMTA [Suspect]
     Indication: LUNG NEOPLASM MALIGNANT
     Dosage: 945 MG, OTHER, INTRAVENOUS
     Route: 042
  2. DEXAMETHASONE [Concomitant]
  3. FOLIC ACID [Concomitant]

REACTIONS (2)
  - FOLLICULITIS [None]
  - PRURITUS [None]
